FAERS Safety Report 4474714-1 (Version None)
Quarter: 2004Q4

REPORT INFORMATION
  Report Type: 
  Country: None (occurrence: None)
  Receive Date: 20041012
  Receipt Date: 20040929
  Transmission Date: 20050328
  Serious: Yes (Hospitalization, Other)
  Sender: FDA-Public Use
  Company Number: STA-AE-04-MTX-365

PATIENT
  Age: 36 Year
  Sex: Female

DRUGS (7)
  1. ENBREL [Suspect]
     Indication: RHEUMATOID ARTHRITIS
     Dosage: 25 MG, 2 PER 1W, SC
     Route: 058
     Dates: start: 20030915, end: 20040720
  2. ENBREL [Suspect]
     Indication: RHEUMATOID ARTHRITIS
     Dosage: 25 MG, 2 PER 1W, SC
     Route: 058
     Dates: start: 20040801
  3. METHOTREXATE [Concomitant]
  4. COZAAR [Concomitant]
  5. NORVASC [Concomitant]
  6. ATENOLOL [Concomitant]
  7. HYZAR(HYDROCHLOROTHIAZIDE/LOSARTAN POTASSIUM) [Concomitant]

REACTIONS (5)
  - INFECTION [None]
  - LEUKOPENIA [None]
  - LUPUS-LIKE SYNDROME [None]
  - SYSTEMIC LUPUS ERYTHEMATOSUS RASH [None]
  - THROMBOCYTOPENIA [None]
